FAERS Safety Report 21973064 (Version 1)
Quarter: 2023Q1

REPORT INFORMATION
  Report Type: Spontaneous
  Country: AU (occurrence: AU)
  Receive Date: 20230209
  Receipt Date: 20230209
  Transmission Date: 20230418
  Serious: Yes (Death, Other)
  Sender: FDA-Public Use
  Company Number: AU-MYLANLABS-2023M1013615

PATIENT
  Age: 33 Year
  Sex: Male

DRUGS (7)
  1. GABAPENTIN [Suspect]
     Active Substance: GABAPENTIN
     Indication: Product used for unknown indication
     Dosage: UNK
     Route: 065
  2. DIAZEPAM [Suspect]
     Active Substance: DIAZEPAM
     Indication: Product used for unknown indication
     Dosage: UNK
     Route: 065
  3. OXYCODONE [Suspect]
     Active Substance: OXYCODONE
     Indication: Headache
     Dosage: 80 MILLIGRAM, BID ( 80 MG 1 PER 12 HOURS)
     Route: 048
  4. OXYCODONE [Suspect]
     Active Substance: OXYCODONE
     Dosage: 120 MILLIGRAM
     Route: 048
  5. MORPHINE [Suspect]
     Active Substance: MORPHINE
     Indication: Headache
     Dosage: UNK (20 TO 40 MILLIGRAM, PRN)
     Route: 065
  6. MORPHINE [Suspect]
     Active Substance: MORPHINE
     Dosage: 200 MILLIGRAM
     Route: 048
  7. MORPHINE [Suspect]
     Active Substance: MORPHINE
     Dosage: UNK  (535 TO 595 MG)
     Route: 048

REACTIONS (1)
  - Toxicity to various agents [Fatal]
